FAERS Safety Report 9455523 (Version 3)
Quarter: 2014Q1

REPORT INFORMATION
  Report Type: Spontaneous
  Country: NO (occurrence: NO)
  Receive Date: 20130813
  Receipt Date: 20140109
  Transmission Date: 20141002
  Serious: Yes (Life-Threatening, Hospitalization)
  Sender: FDA-Public Use
  Company Number: NO-PFIZER INC-2013232504

PATIENT
  Age: 72 Year
  Sex: Male

DRUGS (50)
  1. PRO-EPANUTIN [Suspect]
     Indication: CONVULSION
     Dosage: 30/4: 2000MG BOLUS
     Dates: start: 20130430, end: 20130430
  2. PRO-EPANUTIN [Interacting]
     Indication: MYOCLONUS
     Dosage: 1/5: 300MG FNE X 2
     Dates: start: 20130501, end: 20130501
  3. PRO-EPANUTIN [Interacting]
     Dosage: 2/5-10/5: 400MG FNE X 2
     Dates: start: 20130502, end: 20130510
  4. PRO-EPANUTIN [Interacting]
     Dosage: 11/5: 300MG FNE X 2
     Dates: start: 20130511, end: 20130511
  5. PRO-EPANUTIN [Interacting]
     Dosage: 12/5: 300MGX1
     Dates: start: 20130512, end: 20130512
  6. DIFLUCAN [Interacting]
     Indication: FUNGAL INFECTION
     Dosage: 6/5: 800 MG X 1
     Dates: start: 20130506, end: 20130506
  7. DIFLUCAN [Interacting]
     Dosage: 7/5-20/5: 400 MG X 1
     Dates: start: 20130507, end: 20130520
  8. DIFLUCAN [Interacting]
     Dosage: 21/5-22/5: 200 MG X 1
     Dates: start: 20130521, end: 20130522
  9. PROPOFOL [Suspect]
     Indication: CONVULSION
     Dosage: 50 MG X APPROXIMATELY 10 PER DAY
     Dates: start: 20130427, end: 20130428
  10. AMINOPHYLLINE [Interacting]
     Indication: ASTHMA
     Dosage: 50-25 MG/H
     Dates: start: 20130516, end: 20130520
  11. FENTANYL [Suspect]
     Indication: SEDATION
     Dosage: 20130426-20130428: 250 MICROG/H
     Route: 062
     Dates: start: 20130426, end: 201304
  12. FENTANYL [Suspect]
     Dosage: 20130428-20130430: 100 MICROG/H
     Route: 062
     Dates: start: 201304, end: 20130430
  13. ANEXATE [Suspect]
     Indication: REVERSAL OF SEDATION
     Dosage: 0.5 MG, 3X/DAY
     Dates: start: 20130516, end: 20130516
  14. CATAPRESAN [Suspect]
     Indication: SEDATION
     Dosage: 60 UG, UNK
     Dates: start: 20130502, end: 20130509
  15. STESOLID [Suspect]
     Indication: CONVULSION
     Dosage: 5 MG, UNK
     Dates: start: 20130429, end: 20130503
  16. DEXDOR [Suspect]
     Indication: SEDATION
     Dosage: 10 UG/KG, UNK
     Dates: start: 20130428, end: 20130501
  17. MIDAZOLAM [Suspect]
     Indication: SEDATION
     Dosage: 26/4-27/4: 10 MG/H
     Dates: start: 20130426, end: 201304
  18. MIDAZOLAM [Suspect]
     Dosage: 27/4-28/4: 7 MG/H
     Dates: start: 201304, end: 201304
  19. MIDAZOLAM [Suspect]
     Dosage: 28/4-29/4: 3 MG/H
     Dates: start: 201304, end: 20130429
  20. DALACIN [Concomitant]
     Indication: INFECTION
     Dosage: 600 MG, 3X/DAY
     Dates: start: 20130428, end: 20130428
  21. FRAGMIN [Concomitant]
     Indication: THROMBOSIS PROPHYLAXIS
     Dosage: 2500-5000 IU X 1
     Dates: start: 20130428, end: 20130522
  22. SOLU-CORTEF [Concomitant]
     Indication: ASTHMA
     Dosage: FROM 20130426: 100 MG X 2, FROM 20130509: 50 MG X 2
     Dates: start: 20130426, end: 20130508
  23. SOLU-CORTEF [Concomitant]
     Dosage: 50 MG, 2X/DAY
     Dates: start: 20130509, end: 20130521
  24. NALOXONE [Concomitant]
     Dosage: 0.4 MG, 1X/DAY
     Dates: start: 20130516, end: 20130516
  25. AFIPRAN [Concomitant]
     Dosage: 10 MG, 3X/DAY
     Dates: start: 20130427, end: 20130504
  26. ACTRAPID PENFILL [Concomitant]
     Indication: BLOOD GLUCOSE ABNORMAL
     Dosage: 1 IU/ML
     Dates: start: 20130426, end: 20130522
  27. NOREPINEPHRINE [Concomitant]
     Indication: VASOPRESSIVE THERAPY
     Dosage: TITRATED TO EFFECT, INTERMITTENT USE AS NEEDED
  28. CEFUROXIM [Concomitant]
     Indication: INFECTION
     Dosage: 750 MG, 3X/DAY
     Dates: start: 20130426, end: 20130501
  29. DIAMOX [Concomitant]
     Indication: METABOLIC ALKALOSIS
     Dosage: 250 MG, 2X/DAY
     Dates: start: 20130427, end: 20130430
  30. BURINEX [Concomitant]
     Dosage: 0,5-1 MG X 3-4
     Dates: start: 20130505, end: 20130522
  31. KAJOS [Concomitant]
     Indication: MINERAL SUPPLEMENTATION
     Dosage: ^30 MG X 3^
     Route: 048
     Dates: start: 20130501, end: 20130503
  32. KAJOS [Concomitant]
     Dosage: 15  ML X 2
     Route: 048
     Dates: start: 20130504, end: 20130517
  33. BACTRIM [Concomitant]
     Indication: INFECTION
     Dosage: 20 ML, 2X/DAY
     Dates: start: 20130519, end: 20130522
  34. RIVOTRIL [Concomitant]
     Dosage: 0.5 MG, 4X/DAY
     Dates: start: 20130509, end: 20130516
  35. VENTOLINE [Concomitant]
     Indication: ASTHMA
     Dosage: 5 MG, EVERY 4 HRS
     Dates: start: 20130426, end: 20130522
  36. ABACIN [Concomitant]
     Indication: INFECTION
     Dosage: 160 MG, 2X/DAY
     Route: 048
     Dates: start: 20130517, end: 20130518
  37. SINGULAIR [Concomitant]
     Indication: ASTHMA
     Dosage: 10 MG, 1X/DAY
     Dates: start: 20130513, end: 20130522
  38. POTASSIUM CHLORIDE [Concomitant]
     Indication: MINERAL SUPPLEMENTATION
     Dosage: 20 MMOL, UNK
     Route: 048
     Dates: start: 20130517, end: 20130522
  39. SOMAC [Concomitant]
     Indication: PROPHYLAXIS AGAINST GASTROINTESTINAL ULCER
     Dosage: 40 MG, 1X/DAY
     Dates: start: 20130426, end: 20130522
  40. LAXOBERAL [Concomitant]
     Dosage: 10-15 GTT X 1-2
     Dates: start: 20130427, end: 20130522
  41. KEPPRA [Concomitant]
     Dosage: 500 MG, 2X/DAY
     Dates: start: 20130508, end: 20130509
  42. KEPPRA [Concomitant]
     Dosage: 750 MG, 2X/DAY
     Dates: start: 20130510, end: 20130522
  43. ESIDREX [Concomitant]
     Dosage: 25 MG, 1X/DAY
     Dates: start: 20130430, end: 20130507
  44. MERONEM [Concomitant]
     Indication: INFECTION
     Dosage: 1 G, 3X/DAY
     Dates: start: 20130505, end: 20130512
  45. KLEXANE [Concomitant]
     Indication: THROMBOSIS PROPHYLAXIS
     Dosage: 40 MG, 1X/DAY
     Dates: start: 20130426, end: 20130427
  46. CETIRIZINE [Concomitant]
     Indication: HYPERSENSITIVITY
     Dosage: 10 ML, 1X/DAY
     Dates: start: 20130507, end: 20130522
  47. VANCOMYCIN [Concomitant]
     Indication: INFECTION
     Dosage: 1 MG, 2X/DAY
     Dates: start: 20130516, end: 20130522
  48. RELISTOR [Concomitant]
     Dosage: 12 MG, ALTERNATE DAY
     Dates: start: 20130427, end: 20130430
  49. ATROVENT [Concomitant]
     Indication: ASTHMA
     Dosage: 0.5 MG, EVERY 4 HRS
     Dates: start: 20130426, end: 20130522
  50. SPIRIX [Concomitant]
     Indication: DIURETIC THERAPY
     Dosage: 50 MG, 1X/DAY
     Dates: start: 20130503, end: 20130522

REACTIONS (3)
  - Drug interaction [Recovered/Resolved]
  - Coma [Recovered/Resolved]
  - Drug effect prolonged [Recovered/Resolved]
